FAERS Safety Report 7981312-1 (Version None)
Quarter: 2011Q4

REPORT INFORMATION
  Report Type: 
  Country: None (occurrence: None)
  Receive Date: 20111215
  Receipt Date: 20111205
  Transmission Date: 20120403
  Serious: Yes (Other)
  Sender: FDA-Public Use
  Company Number: US-BAYER-2011-111675

PATIENT
  Age: 44 Year
  Sex: Female
  Weight: 77.098 kg

DRUGS (10)
  1. YASMIN [Suspect]
     Dosage: UNK
     Dates: start: 20040101, end: 20080101
  2. LISINOPRIL [Concomitant]
     Dosage: UNK
     Dates: start: 19980101, end: 20080101
  3. MUCINEX [Concomitant]
     Dosage: 600 MG, BID
  4. DIAGUM [Concomitant]
     Dosage: 500 MG, DAILY
  5. ANTIHYPERTENSIVES [Concomitant]
     Dosage: UNK
     Dates: start: 19980101, end: 20080101
  6. YAZ [Suspect]
     Dosage: UNK
     Dates: start: 20080101
  7. ALBUTEROL [Concomitant]
  8. ADVAIR DISKUS 100/50 [Concomitant]
  9. METOPROLOL TARTRATE [Concomitant]
     Dosage: 50 MG, DAILY
  10. CARDIAC MEDICATION [Concomitant]
     Dosage: UNK
     Dates: start: 19980101, end: 20080101

REACTIONS (1)
  - TACHYCARDIA [None]
